FAERS Safety Report 5589362-X (Version None)
Quarter: 2008Q1

REPORT INFORMATION
  Report Type: 
  Country: None (occurrence: None)
  Receive Date: 20080114
  Receipt Date: 20080107
  Transmission Date: 20080703
  Serious: Yes (Hospitalization, Other)
  Sender: FDA-Public Use
  Company Number: US-JNJFOC-20060906230

PATIENT
  Sex: Female
  Weight: 114.31 kg

DRUGS (2)
  1. RISPERDAL [Suspect]
     Indication: HALLUCINATION
  2. RISPERDAL [Suspect]
     Indication: DELUSION

REACTIONS (1)
  - TYPE 2 DIABETES MELLITUS [None]
